FAERS Safety Report 15101121 (Version 1)
Quarter: 2018Q3

REPORT INFORMATION
  Report Type: Report from Study
  Country: CA (occurrence: CA)
  Receive Date: 20180703
  Receipt Date: 20180703
  Transmission Date: 20181010
  Serious: Yes (Hospitalization)
  Sender: FDA-Public Use
  Company Number: PHHO2018CA007726

PATIENT
  Age: 3 Year
  Sex: Female
  Weight: 18.1 kg

DRUGS (3)
  1. CTL019 [Suspect]
     Active Substance: TISAGENLECLEUCEL
     Indication: ACUTE LYMPHOCYTIC LEUKAEMIA
     Dosage: 16 ML, UNK
     Route: 042
     Dates: start: 20180320, end: 20180320
  2. CYCLOPHOSPHAMIDE. [Concomitant]
     Active Substance: CYCLOPHOSPHAMIDE
     Indication: CHEMOTHERAPY
     Dosage: 370 MG, OVER 1 HOUR Q24H
     Route: 042
     Dates: start: 20180314
  3. FLUDARABINE [Concomitant]
     Active Substance: FLUDARABINE PHOSPHATE
     Indication: CHEMOTHERAPY
     Dosage: 22 MG, OVER 30 MINS, Q24H
     Route: 042
     Dates: start: 20180314

REACTIONS (2)
  - Facial paralysis [Recovered/Resolved]
  - Dysarthria [Recovered/Resolved]

NARRATIVE: CASE EVENT DATE: 20180622
